FAERS Safety Report 21465785 (Version 1)
Quarter: 2022Q4

REPORT INFORMATION
  Report Type: Spontaneous
  Country: DE (occurrence: DE)
  Receive Date: 20221017
  Receipt Date: 20221017
  Transmission Date: 20230112
  Serious: Yes (Other)
  Sender: FDA-Public Use
  Company Number: DE-VIIV HEALTHCARE LIMITED-DE2022EME146430

PATIENT

DRUGS (1)
  1. DOVATO [Suspect]
     Active Substance: DOLUTEGRAVIR SODIUM\LAMIVUDINE
     Indication: Hepatitis B
     Dosage: UNK

REACTIONS (4)
  - Hepatitis B reactivation [Unknown]
  - Hepatitis B DNA increased [Unknown]
  - Transaminases increased [Unknown]
  - Product use in unapproved therapeutic environment [Unknown]
